FAERS Safety Report 9879195 (Version 2)
Quarter: 2014Q1

REPORT INFORMATION
  Report Type: Spontaneous
  Country: US (occurrence: US)
  Receive Date: 20140206
  Receipt Date: 20140206
  Transmission Date: 20141002
  Serious: No
  Sender: FDA-Public Use
  Company Number: US-ALLERGAN-1314147US

PATIENT
  Age: 4 Decade
  Sex: Female

DRUGS (3)
  1. BOTOX COSMETIC [Suspect]
     Indication: SKIN WRINKLING
     Dosage: 19 UNITS, SINGLE
     Route: 030
     Dates: start: 20130911, end: 20130911
  2. VITAMINS                           /00067501/ [Concomitant]
     Indication: SUPPLEMENTATION THERAPY
     Dosage: UNK
  3. BIRTH CONTROL PILLS NOS [Concomitant]
     Indication: CONTRACEPTION
     Dosage: UNK

REACTIONS (6)
  - Influenza [Unknown]
  - Pain in extremity [Unknown]
  - Pain [Unknown]
  - Dizziness [Unknown]
  - Dizziness [Unknown]
  - Pyrexia [Unknown]
